FAERS Safety Report 8923050 (Version 3)
Quarter: 2013Q1

REPORT INFORMATION
  Report Type: Spontaneous
  Country: US (occurrence: None)
  Receive Date: 20121115
  Receipt Date: 20130122
  Transmission Date: 20140127
  Serious: Yes (Death, Life-Threatening, Hospitalization, Congenital Anomaly, Other)
  Sender: FDA-Public Use
  Company Number: DSA_60836_2012

PATIENT
  Age: 25 Year
  Sex: Male

DRUGS (2)
  1. XENAZINE [Suspect]
     Indication: DYSPHONIA
     Route: 048
     Dates: start: 20101109, end: 20121025
  2. XENAZINE [Suspect]
     Route: 048
     Dates: start: 20101109, end: 20121025

REACTIONS (1)
  - Death [None]
